FAERS Safety Report 18366823 (Version 6)
Quarter: 2024Q2

REPORT INFORMATION
  Report Type: Spontaneous
  Country: JP (occurrence: JP)
  Receive Date: 20201009
  Receipt Date: 20240611
  Transmission Date: 20240715
  Serious: Yes (Other)
  Sender: FDA-Public Use
  Company Number: None

PATIENT
  Sex: Female

DRUGS (4)
  1. DABRAFENIB [Suspect]
     Active Substance: DABRAFENIB
     Indication: Metastatic malignant melanoma
     Dosage: 150 MG, BID
     Route: 065
  2. DABRAFENIB [Suspect]
     Active Substance: DABRAFENIB
     Dosage: 100 MG, BID
     Route: 065
  3. TRAMETINIB [Suspect]
     Active Substance: TRAMETINIB
     Indication: Metastatic malignant melanoma
     Dosage: 2 MG, QD
     Route: 065
  4. TRAMETINIB [Suspect]
     Active Substance: TRAMETINIB
     Dosage: 1.5 MG, QD
     Route: 065

REACTIONS (2)
  - Eye pain [Recovered/Resolved]
  - Pyrexia [Unknown]
